FAERS Safety Report 4494616-4 (Version None)
Quarter: 2004Q4

REPORT INFORMATION
  Report Type: 
  Country: None (occurrence: None)
  Receive Date: 20041105
  Receipt Date: 20041026
  Transmission Date: 20050328
  Serious: Yes (Disabling)
  Sender: FDA-Public Use
  Company Number: US-MERCK-0410USA03953

PATIENT
  Sex: Male

DRUGS (3)
  1. VYTORIN [Suspect]
     Indication: BLOOD CHOLESTEROL INCREASED
     Route: 048
     Dates: start: 20040901, end: 20040101
  2. PARNATE [Concomitant]
     Route: 065
  3. KLONOPIN [Concomitant]
     Route: 065

REACTIONS (2)
  - MYALGIA [None]
  - URINE OUTPUT INCREASED [None]
